FAERS Safety Report 7879930-4 (Version None)
Quarter: 2011Q4

REPORT INFORMATION
  Report Type: 
  Country: None (occurrence: None)
  Receive Date: 20111101
  Receipt Date: 20111021
  Transmission Date: 20120403
  Serious: Yes (Other)
  Sender: FDA-Public Use
  Company Number: JP-MERCK-1110USA03619

PATIENT
  Age: 46 Year
  Sex: Female

DRUGS (2)
  1. CELECOXIB [Suspect]
     Route: 048
     Dates: start: 20101201, end: 20101201
  2. PEPCID [Suspect]
     Route: 048
     Dates: start: 20101201, end: 20101201

REACTIONS (1)
  - ERYTHEMA MULTIFORME [None]
